FAERS Safety Report 23154286 (Version 1)
Quarter: 2023Q4

REPORT INFORMATION
  Report Type: Spontaneous
  Country: CA (occurrence: CA)
  Receive Date: 20231107
  Receipt Date: 20231107
  Transmission Date: 20240109
  Serious: No
  Sender: FDA-Public Use
  Company Number: CA-SCALL-2023-AMR-038265

PATIENT
  Age: 82 Year
  Sex: Male

DRUGS (1)
  1. DUTASTERIDE [Suspect]
     Active Substance: DUTASTERIDE
     Dosage: UNKNOWN
     Route: 065
     Dates: start: 20221012, end: 20221013

REACTIONS (4)
  - Rash [Unknown]
  - Pruritus [Unknown]
  - Pigmentation disorder [Not Recovered/Not Resolved]
  - Breast enlargement [Not Recovered/Not Resolved]

NARRATIVE: CASE EVENT DATE: 20221012
